FAERS Safety Report 9621450 (Version 2)
Quarter: 2014Q3

REPORT INFORMATION
  Report Type: Spontaneous
  Country: US (occurrence: US)
  Receive Date: 20131015
  Receipt Date: 20140702
  Transmission Date: 20150326
  Serious: Yes (Other)
  Sender: FDA-Public Use
  Company Number: US-BAYER-2013-120349

PATIENT
  Age: 20 Year
  Sex: Female
  Weight: 84.81 kg

DRUGS (2)
  1. MIRENA [Suspect]
     Active Substance: LEVONORGESTREL
     Indication: PELVIC PAIN
     Dosage: 20 MCG/24HR, CONT
     Route: 015
     Dates: start: 20120215
  2. MIRENA [Suspect]
     Active Substance: LEVONORGESTREL
     Indication: ENDOMETRIOSIS

REACTIONS (5)
  - Hydrometra [None]
  - Abdominal pain [None]
  - Constipation [None]
  - Off label use [None]
  - Painful defaecation [None]

NARRATIVE: CASE EVENT DATE: 20120215
